FAERS Safety Report 5244243-6 (Version None)
Quarter: 2007Q1

REPORT INFORMATION
  Report Type: 
  Country: None (occurrence: None)
  Receive Date: 20070222
  Receipt Date: 20070213
  Transmission Date: 20070707
  Serious: Yes (Other)
  Sender: FDA-Public Use
  Company Number: FR-JNJFOC-20070204152

PATIENT
  Age: 27 Year
  Sex: Female

DRUGS (3)
  1. ACETAMINOPHEN AND TRAMADOL HCL [Suspect]
     Indication: ARTHRALGIA
     Route: 048
  2. VOLTAREN [Concomitant]
     Route: 065
  3. PARIET [Concomitant]
     Route: 065

REACTIONS (1)
  - ABNORMAL BEHAVIOUR [None]
